FAERS Safety Report 15790636 (Version 1)
Quarter: 2019Q1

REPORT INFORMATION
  Report Type: Spontaneous
  Country: US (occurrence: US)
  Receive Date: 20190104
  Receipt Date: 20190104
  Transmission Date: 20190417
  Serious: Yes (Death)
  Sender: FDA-Public Use
  Company Number: US-BAYER-2019-001919

PATIENT
  Age: 41 Year
  Sex: Female

DRUGS (3)
  1. CHLORPHENIRAMINE MALEATE. [Suspect]
     Active Substance: CHLORPHENIRAMINE MALEATE
     Route: 065
  2. CARBON [Suspect]
     Active Substance: ACTIVATED CHARCOAL
     Route: 045
  3. CLONAZEPAM. [Suspect]
     Active Substance: CLONAZEPAM

REACTIONS (2)
  - Drug abuse [Fatal]
  - Toxicity to various agents [Fatal]
